FAERS Safety Report 14726169 (Version 1)
Quarter: 2018Q2

REPORT INFORMATION
  Report Type: Spontaneous
  Country: CA (occurrence: CA)
  Receive Date: 20180406
  Receipt Date: 20180406
  Transmission Date: 20180711
  Serious: Yes (Other)
  Sender: FDA-Public Use
  Company Number: CA-TEVA-2018-CA-878234

PATIENT
  Age: 33 Year
  Sex: Male
  Weight: 108 kg

DRUGS (1)
  1. TEVA-ESCITALOPRAM [Suspect]
     Active Substance: ESCITALOPRAM OXALATE
     Indication: AFFECTIVE DISORDER
     Route: 048

REACTIONS (3)
  - Chromaturia [Recovered/Resolved]
  - Alanine aminotransferase increased [Recovered/Resolved]
  - Oedema peripheral [Recovered/Resolved]
